FAERS Safety Report 23395522 (Version 2)
Quarter: 2024Q1

REPORT INFORMATION
  Report Type: Spontaneous
  Country: CA (occurrence: CA)
  Receive Date: 20240112
  Receipt Date: 20240208
  Transmission Date: 20240410
  Serious: Yes (Other)
  Sender: FDA-Public Use
  Company Number: CA-ALK-ABELLO A/S-2024AA000097

PATIENT

DRUGS (13)
  1. STERILE DILUENT FOR ALLERGENIC EXTRACT NOS [Suspect]
     Active Substance: ALBUMIN HUMAN OR GLYCERIN OR PHENOL
     Indication: Product used for unknown indication
     Route: 065
  2. ALNUS INCANA SUBSP. RUGOSA POLLEN [Suspect]
     Active Substance: ALNUS INCANA SUBSP. RUGOSA POLLEN
     Indication: Product used for unknown indication
     Route: 065
  3. BETULA PENDULA POLLEN [Suspect]
     Active Substance: BETULA PENDULA POLLEN
     Indication: Product used for unknown indication
     Route: 065
  4. BROMUS INERMIS POLLEN [Suspect]
     Active Substance: BROMUS INERMIS POLLEN
     Indication: Product used for unknown indication
     Route: 065
  5. SORGHUM HALEPENSE POLLEN [Suspect]
     Active Substance: SORGHUM HALEPENSE POLLEN
     Indication: Product used for unknown indication
     Route: 065
  6. ALFALFA POLLEN [Suspect]
     Active Substance: MEDICAGO SATIVA POLLEN
     Indication: Product used for unknown indication
     Route: 065
  7. FESTUCA PRATENSIS POLLEN [Suspect]
     Active Substance: FESTUCA PRATENSIS POLLEN
     Indication: Product used for unknown indication
     Route: 065
  8. LOLIUM PERENNE POLLEN [Suspect]
     Active Substance: LOLIUM PERENNE POLLEN
     Indication: Product used for unknown indication
     Route: 065
  9. POA PRATENSIS POLLEN [Suspect]
     Active Substance: POA PRATENSIS POLLEN
     Indication: Product used for unknown indication
     Route: 065
  10. DACTYLIS GLOMERATA POLLEN [Suspect]
     Active Substance: DACTYLIS GLOMERATA POLLEN
     Indication: Product used for unknown indication
     Route: 065
  11. AGROSTIS GIGANTEA POLLEN [Suspect]
     Active Substance: AGROSTIS GIGANTEA POLLEN
     Indication: Product used for unknown indication
     Route: 065
  12. ANTHOXANTHUM ODORATUM POLLEN [Suspect]
     Active Substance: ANTHOXANTHUM ODORATUM POLLEN
     Indication: Product used for unknown indication
     Route: 065
  13. PHLEUM PRATENSE POLLEN [Suspect]
     Active Substance: PHLEUM PRATENSE POLLEN
     Indication: Product used for unknown indication
     Route: 065

REACTIONS (4)
  - Urticaria [Unknown]
  - Dyspnoea [Unknown]
  - Obstructive airways disorder [Unknown]
  - Local reaction [Unknown]
